FAERS Safety Report 4837864-3 (Version None)
Quarter: 2005Q4

REPORT INFORMATION
  Report Type: 
  Country: None (occurrence: None)
  Receive Date: 20051123
  Receipt Date: 20051123
  Transmission Date: 20060501
  Serious: Yes (Other)
  Sender: FDA-Public Use
  Company Number: None

PATIENT
  Age: 4 Month
  Sex: Female
  Weight: 4.536 kg

DRUGS (1)
  1. SYNAGIS [Suspect]
     Dosage: 65 MG I.M.
     Route: 030
     Dates: start: 20051004

REACTIONS (5)
  - ADVERSE DRUG REACTION [None]
  - DERMATITIS CONTACT [None]
  - INJECTION SITE INDURATION [None]
  - INJECTION SITE REACTION [None]
  - RASH [None]
